FAERS Safety Report 8081182-X (Version None)
Quarter: 2012Q1

REPORT INFORMATION
  Report Type: 
  Country: None (occurrence: None)
  Receive Date: 20120130
  Receipt Date: 20120120
  Transmission Date: 20120608
  Serious: Yes (Hospitalization)
  Sender: FDA-Public Use
  Company Number: FR-GLAXOSMITHKLINE-B0776462A

PATIENT
  Sex: Male

DRUGS (5)
  1. ARIXTRA [Suspect]
     Indication: DEEP VEIN THROMBOSIS
     Dosage: 7.5MG PER DAY
     Route: 058
     Dates: start: 20111013, end: 20111016
  2. PREVISCAN [Suspect]
     Indication: DEEP VEIN THROMBOSIS
     Dosage: 20MG PER DAY
     Route: 048
     Dates: start: 20111011, end: 20111018
  3. CHLOROQUINE PHOSPHATE [Concomitant]
  4. EMOLLIENT (UNSPECIFIED) [Concomitant]
     Indication: DERMATITIS
  5. DERMOCORTICOID [Concomitant]
     Indication: DERMATITIS

REACTIONS (1)
  - MUSCLE HAEMORRHAGE [None]
